FAERS Safety Report 9928143 (Version 2)
Quarter: 2016Q2

REPORT INFORMATION
  Report Type: Report from Study
  Country: US (occurrence: US)
  Receive Date: 20140227
  Receipt Date: 20160418
  Transmission Date: 20160815
  Serious: Yes (Other)
  Sender: FDA-Public Use
  Company Number: US-ROCHE-1330361

PATIENT
  Age: 71 Year
  Sex: Male

DRUGS (25)
  1. AVASTIN [Suspect]
     Active Substance: BEVACIZUMAB
     Indication: NEOVASCULAR AGE-RELATED MACULAR DEGENERATION
     Dosage: DOUBLE DOSE
     Route: 050
     Dates: start: 20080327
  2. OMEPRAZOLE. [Concomitant]
     Active Substance: OMEPRAZOLE
  3. GEMFIBROZIL. [Concomitant]
     Active Substance: GEMFIBROZIL
  4. SIMVASTATIN. [Concomitant]
     Active Substance: SIMVASTATIN
  5. METFORMIN HYDROCHLORIDE. [Concomitant]
     Active Substance: METFORMIN HYDROCHLORIDE
     Route: 065
  6. ASPIRIN. [Concomitant]
     Active Substance: ASPIRIN
     Route: 065
  7. MELATONIN [Concomitant]
     Active Substance: MELATONIN
     Indication: NEOVASCULAR AGE-RELATED MACULAR DEGENERATION
  8. BETADINE [Concomitant]
     Active Substance: POVIDONE-IODINE
     Route: 047
  9. CYCLOGYL [Concomitant]
     Active Substance: CYCLOPENTOLATE HYDROCHLORIDE
     Route: 065
  10. METOPROLOL. [Concomitant]
     Active Substance: METOPROLOL
     Dosage: IN THE AM
     Route: 065
  11. VITAMIN A [Concomitant]
     Active Substance: VITAMIN A
  12. CYCLOGYL [Concomitant]
     Active Substance: CYCLOPENTOLATE HYDROCHLORIDE
     Route: 065
  13. WARFARIN SODIUM. [Concomitant]
     Active Substance: WARFARIN SODIUM
  14. AMLODIPINE [Concomitant]
     Active Substance: AMLODIPINE BESYLATE
  15. HYDROCHLOROTHIAZIDE. [Concomitant]
     Active Substance: HYDROCHLOROTHIAZIDE
  16. PRESERVISION AREDS [Concomitant]
     Active Substance: MINERALS\VITAMINS
  17. SELENIUM SULFIDE. [Concomitant]
     Active Substance: SELENIUM SULFIDE
  18. TYLENOL ARTHRITIS PAIN [Concomitant]
     Active Substance: ACETAMINOPHEN
  19. FISH OIL [Concomitant]
     Active Substance: FISH OIL
  20. DIPHENHYDRAMINE HYDROCHLORIDE. [Concomitant]
     Active Substance: DIPHENHYDRAMINE HYDROCHLORIDE
  21. LUCENTIS [Suspect]
     Active Substance: RANIBIZUMAB
     Indication: NEOVASCULAR AGE-RELATED MACULAR DEGENERATION
     Route: 050
     Dates: start: 20091013
  22. ENALAPRIL MALEATE. [Concomitant]
     Active Substance: ENALAPRIL MALEATE
  23. XYLOCAINE [Concomitant]
     Active Substance: LIDOCAINE HYDROCHLORIDE
     Route: 065
  24. MYDRIACYL [Concomitant]
     Active Substance: TROPICAMIDE
     Route: 065
  25. METOPROLOL. [Concomitant]
     Active Substance: METOPROLOL
     Dosage: IN THE PM
     Route: 065

REACTIONS (10)
  - Lacrimation decreased [Unknown]
  - Cutis laxa [Unknown]
  - Macular degeneration [Unknown]
  - Retinal pigment epithelial tear [Unknown]
  - Visual acuity reduced [Unknown]
  - Cataract nuclear [Unknown]
  - Detachment of retinal pigment epithelium [Unknown]
  - Retinal haemorrhage [Unknown]
  - Off label use [Unknown]
  - Vitreous detachment [Unknown]

NARRATIVE: CASE EVENT DATE: 201109
